FAERS Safety Report 4962129-9 (Version None)
Quarter: 2006Q1

REPORT INFORMATION
  Report Type: 
  Country: None (occurrence: None)
  Receive Date: 20060329
  Receipt Date: 20060317
  Transmission Date: 20060701
  Serious: Yes (Other)
  Sender: FDA-Public Use
  Company Number: 2006038672

PATIENT
  Age: 21 Year
  Sex: Male
  Weight: 81.6475 kg

DRUGS (1)
  1. VISINE II EYE DROPS [Suspect]
     Dosage: WHOLE BOTTLE ONCE, ORAL
     Route: 048
     Dates: start: 20060315, end: 20060315

REACTIONS (4)
  - ABDOMINAL PAIN UPPER [None]
  - ACCIDENTAL EXPOSURE [None]
  - LOSS OF CONSCIOUSNESS [None]
  - VOMITING [None]
